FAERS Safety Report 6546072-X (Version None)
Quarter: 2010Q1

REPORT INFORMATION
  Report Type: 
  Country: None (occurrence: None)
  Receive Date: 20100119
  Receipt Date: 20100106
  Transmission Date: 20100710
  Serious: Yes (Other)
  Sender: FDA-Public Use
  Company Number: 100114-0000041

PATIENT

DRUGS (5)
  1. MUSTARGEN [Suspect]
     Indication: HODGKIN'S DISEASE
  2. VINCRISTINE [Suspect]
     Indication: HODGKIN'S DISEASE
  3. PROCARBAZINE HYDROCHLORIDE [Suspect]
     Indication: HODGKIN'S DISEASE
  4. PREDNISONE [Suspect]
     Indication: HODGKIN'S DISEASE
  5. BLEOMYCIN SULFATE [Suspect]
     Indication: HODGKIN'S DISEASE
     Dosage: IV
     Route: 042

REACTIONS (1)
  - INFECTION [None]
